FAERS Safety Report 8627959 (Version 2)
Quarter: 2012Q4

REPORT INFORMATION
  Report Type: Report from Study
  Country: US (occurrence: US)
  Receive Date: 20120621
  Receipt Date: 20120919
  Transmission Date: 20130627
  Serious: Yes (Hospitalization)
  Sender: FDA-Public Use
  Company Number: US-PFIZER INC-2012145629

PATIENT
  Age: 71 Year
  Sex: Male

DRUGS (5)
  1. SAXAGLIPTIN [Suspect]
     Indication: TYPE 2 DIABETES MELLITUS
     Dosage: UNK
     Dates: start: 20110921, end: 20120330
  2. PLACEBO [Suspect]
     Indication: TYPE 2 DIABETES MELLITUS
     Dosage: UNK
     Dates: start: 20110921, end: 20120330
  3. OXYCODONE HYDROCHLORIDE [Concomitant]
  4. METFORMIN HYDROCHLORIDE [Concomitant]
     Indication: TYPE 2 DIABETES MELLITUS
     Dosage: 500 mg, UNK
  5. ACETYLSALICYLIC ACID [Concomitant]

REACTIONS (5)
  - Chronic obstructive pulmonary disease [Recovered/Resolved]
  - Arterial occlusive disease [Recovered/Resolved]
  - Cellulitis [Recovered/Resolved]
  - Peripheral ischaemia [Recovered/Resolved]
  - Hyperkalaemia [Recovered/Resolved]
